FAERS Safety Report 8798871 (Version 1)
Quarter: 2012Q4

REPORT INFORMATION
  Report Type: 
  Country: JP (occurrence: JP)
  Receive Date: 20120920
  Receipt Date: 20120920
  Transmission Date: 20130627
  Serious: Yes (Death)
  Sender: FDA-Public Use
  Company Number: JP-GLAXOSMITHKLINE-B0831157A

PATIENT
  Age: 74 Year
  Sex: Female

DRUGS (2)
  1. PAXIL [Suspect]
     Indication: DEPRESSION
     Dosage: 12.5MG Per day
     Route: 048
     Dates: start: 20120714, end: 20120806
  2. REFLEX (JAPAN) [Concomitant]
     Indication: DEPRESSION
     Dosage: 15MG Twice per day
     Route: 048
     Dates: end: 20120806

REACTIONS (1)
  - Completed suicide [Fatal]
